FAERS Safety Report 6520868-2 (Version None)
Quarter: 2009Q4

REPORT INFORMATION
  Report Type: 
  Country: None (occurrence: None)
  Receive Date: 20091229
  Receipt Date: 20091218
  Transmission Date: 20100525
  Serious: Yes (Death, Hospitalization)
  Sender: FDA-Public Use
  Company Number: US-JNJFOC-20091102745

PATIENT
  Sex: Female
  Weight: 51.7 kg

DRUGS (17)
  1. DOXORUBICIN HCL [Suspect]
     Indication: OVARIAN CANCER RECURRENT
     Dosage: 128MG
     Route: 042
     Dates: start: 20090914, end: 20091013
  2. TASISULAM SODIUM [Suspect]
     Indication: OVARIAN CANCER RECURRENT
     Dosage: CYCLE 2
     Route: 042
     Dates: start: 20090914, end: 20091013
  3. TASISULAM SODIUM [Suspect]
     Dosage: CYCLE 1
     Route: 042
     Dates: start: 20090914, end: 20091013
  4. GLYCERYL TRINITRATE [Concomitant]
     Route: 065
  5. TOPROL-XL [Concomitant]
     Route: 065
  6. ZOCOR [Concomitant]
     Route: 065
  7. LEVOTHYROXINE SODIUM [Concomitant]
     Route: 065
  8. HYDROCHLOROTHIAZIDE [Concomitant]
     Route: 065
  9. MORPHINE [Concomitant]
     Route: 065
  10. OLMESARTAN MEDOXOMIL [Concomitant]
     Route: 065
  11. AVALIDE [Concomitant]
     Route: 065
  12. PRILOSEC [Concomitant]
     Route: 065
  13. CALCIUM CARBONATE [Concomitant]
     Route: 065
  14. DIPHENHYDRAMINE HYDROCHLORIDE [Concomitant]
     Route: 065
  15. LIDOCAINE HYDROCHLORIDE [Concomitant]
     Route: 065
  16. NYSTATIN [Concomitant]
     Indication: MUCOSAL INFLAMMATION
     Route: 065
  17. MULTIPLE VITAMINS [Concomitant]
     Route: 065

REACTIONS (35)
  - ATRIAL FIBRILLATION [None]
  - ATRIOVENTRICULAR BLOCK FIRST DEGREE [None]
  - BOWEL MOVEMENT IRREGULARITY [None]
  - CARDIAC ARREST [None]
  - CHILLS [None]
  - CHOLELITHIASIS [None]
  - CULTURE URINE POSITIVE [None]
  - DEHYDRATION [None]
  - DILATATION VENTRICULAR [None]
  - DYSPHAGIA [None]
  - EPISTAXIS [None]
  - HAEMOLYTIC TRANSFUSION REACTION [None]
  - HERPES VIRUS INFECTION [None]
  - HYPERTENSION [None]
  - ILEUS [None]
  - LACTOBACILLUS INFECTION [None]
  - LEFT ATRIAL DILATATION [None]
  - MALIGNANT NEOPLASM PROGRESSION [None]
  - MUCOSAL INFLAMMATION [None]
  - MYOCARDIAL ISCHAEMIA [None]
  - NEUTROPHIL COUNT DECREASED [None]
  - ORGAN FAILURE [None]
  - OVARIAN CANCER [None]
  - PLEURAL EFFUSION [None]
  - PNEUMONIA [None]
  - PNEUMONIA ASPIRATION [None]
  - PYREXIA [None]
  - RASH [None]
  - RIGHT VENTRICULAR DYSFUNCTION [None]
  - SEPSIS [None]
  - SINUS TACHYCARDIA [None]
  - STOMATITIS [None]
  - THROMBOCYTOPENIA [None]
  - TRANSFUSION REACTION [None]
  - TRICUSPID VALVE INCOMPETENCE [None]
